FAERS Safety Report 18926544 (Version 1)
Quarter: 2021Q1

REPORT INFORMATION
  Report Type: Spontaneous
  Country: ES (occurrence: ES)
  Receive Date: 20210223
  Receipt Date: 20210223
  Transmission Date: 20210420
  Serious: Yes (Other)
  Sender: FDA-Public Use
  Company Number: ES-AUROBINDO-AUR-APL-2019-092898

PATIENT
  Age: 79 Year
  Sex: Female

DRUGS (1)
  1. ZOLPIDEM [Suspect]
     Active Substance: ZOLPIDEM TARTRATE
     Indication: INSOMNIA
     Dosage: 10 MILLIGRAM, ONCE A DAY AT BEDTIME
     Route: 065

REACTIONS (3)
  - Fall [Unknown]
  - Sleep-related eating disorder [Recovered/Resolved]
  - Amnesia [Recovered/Resolved]
